FAERS Safety Report 24270591 (Version 2)
Quarter: 2024Q3

REPORT INFORMATION
  Report Type: Spontaneous
  Country: CN (occurrence: CN)
  Receive Date: 20240831
  Receipt Date: 20240906
  Transmission Date: 20241016
  Serious: Yes (Hospitalization)
  Sender: BOEHRINGER INGELHEIM
  Company Number: CN-BoehringerIngelheim-2024-BI-048778

PATIENT
  Age: 68 Year
  Sex: Male

DRUGS (1)
  1. OFEV [Suspect]
     Active Substance: NINTEDANIB
     Indication: Pneumonitis
     Route: 048
     Dates: start: 20240725, end: 20240822

REACTIONS (4)
  - Abdominal distension [Recovering/Resolving]
  - Abdominal pain [Recovering/Resolving]
  - Diarrhoea [Recovering/Resolving]
  - Vomiting [Recovering/Resolving]

NARRATIVE: CASE EVENT DATE: 20240730
